FAERS Safety Report 13002055 (Version 1)
Quarter: 2016Q4

REPORT INFORMATION
  Report Type: Report from Study
  Country: JP (occurrence: JP)
  Receive Date: 20161206
  Receipt Date: 20161206
  Transmission Date: 20170207
  Serious: Yes (Hospitalization, Other)
  Sender: FDA-Public Use
  Company Number: JP-INCYTE CORPORATION-2016IN003383

PATIENT
  Age: 53 Year
  Sex: Male

DRUGS (8)
  1. JAKAVI [Suspect]
     Active Substance: RUXOLITINIB
     Dosage: 10 MG, BID
     Route: 048
     Dates: start: 20151110, end: 20151123
  2. BAYASPIRIN [Concomitant]
     Active Substance: ASPIRIN
     Dosage: 200 MG, QD
  3. BAYASPIRIN [Concomitant]
     Active Substance: ASPIRIN
     Indication: MYELOFIBROSIS
     Dosage: 200 MG, QD
     Route: 048
  4. JAKAVI [Suspect]
     Active Substance: RUXOLITINIB
     Dosage: 7.5 MG, BID
     Route: 048
     Dates: start: 20150818, end: 20151109
  5. JAKAVI [Suspect]
     Active Substance: RUXOLITINIB
     Dosage: 12.5 MG, BID
     Route: 048
     Dates: start: 20151124, end: 20151221
  6. JAKAVI [Suspect]
     Active Substance: RUXOLITINIB
     Dosage: 20 MG, BID
     Route: 048
     Dates: start: 20151222
  7. JAKAVI [Suspect]
     Active Substance: RUXOLITINIB
     Indication: MYELOFIBROSIS
     Dosage: 5 MG, BID
     Route: 048
     Dates: start: 20150707, end: 20150817
  8. BAYASPIRIN [Concomitant]
     Active Substance: ASPIRIN
     Dosage: 200 MG, QD

REACTIONS (4)
  - Chloroma [Not Recovered/Not Resolved]
  - Anaemia [Not Recovered/Not Resolved]
  - Myelofibrosis [Unknown]
  - Platelet count decreased [Unknown]

NARRATIVE: CASE EVENT DATE: 20150707
